FAERS Safety Report 11317749 (Version 2)
Quarter: 2015Q3

REPORT INFORMATION
  Report Type: Spontaneous
  Country: FR (occurrence: FR)
  Receive Date: 20150728
  Receipt Date: 20150804
  Transmission Date: 20151125
  Serious: Yes (Hospitalization)
  Sender: FDA-Public Use
  Company Number: FR-TEVA-581279USA

PATIENT
  Age: 63 Year
  Sex: Male

DRUGS (5)
  1. CYTARABINE SANDOZ [Suspect]
     Active Substance: CYTARABINE
     Indication: MANTLE CELL LYMPHOMA STAGE II
     Dosage: 400 MG/M2, D3 D6, TWICE DAILY
     Route: 042
     Dates: start: 20150201, end: 20150203
  2. ALKERAN [Suspect]
     Active Substance: MELPHALAN
     Indication: MANTLE CELL LYMPHOMA STAGE II
     Dosage: 140 MG/M2, D2, ONCE DAILY
     Route: 065
     Dates: start: 20150204
  3. LEVACT [Suspect]
     Active Substance: BENDAMUSTINE HYDROCHLORIDE
     Indication: MANTLE CELL LYMPHOMA STAGE II
     Dosage: 150 MG/M2, D7 D8, ONCE DAILY
     Route: 042
     Dates: start: 20150129, end: 20150130
  4. ETOPOSIDE TEVA [Suspect]
     Active Substance: ETOPOSIDE
     Indication: MANTLE CELL LYMPHOMA STAGE II
     Dosage: 200 MG/M2, D3 D6, ONCE DAILY
     Route: 042
     Dates: start: 20150201, end: 20150203
  5. ALKERAN [Suspect]
     Active Substance: MELPHALAN

REACTIONS (3)
  - Diarrhoea [Recovered/Resolved]
  - Febrile bone marrow aplasia [Recovered/Resolved]
  - Mucosal inflammation [Recovered/Resolved]

NARRATIVE: CASE EVENT DATE: 20150209
